FAERS Safety Report 25522095 (Version 1)
Quarter: 2025Q3

REPORT INFORMATION
  Report Type: Spontaneous
  Country: CN (occurrence: CN)
  Receive Date: 20250707
  Receipt Date: 20250707
  Transmission Date: 20251020
  Serious: Yes (Other)
  Sender: BAXTER
  Company Number: None

PATIENT
  Age: 55 Year
  Sex: Female
  Weight: 45 kg

DRUGS (6)
  1. CYCLOPHOSPHAMIDE [Suspect]
     Active Substance: CYCLOPHOSPHAMIDE
     Indication: Invasive breast carcinoma
     Dosage: 725 MG, EVERY 3 WK, Q21H
     Route: 041
     Dates: start: 20250314, end: 20250606
  2. DOXORUBICIN HYDROCHLORIDE [Suspect]
     Active Substance: DOXORUBICIN HYDROCHLORIDE
     Indication: Invasive breast carcinoma
     Dosage: 50 MG, EVERY 3 WK, Q21H
     Route: 041
     Dates: start: 20250314, end: 20250606
  3. PACLITAXEL [Suspect]
     Active Substance: PACLITAXEL
     Indication: Invasive breast carcinoma
     Dosage: 377 MG, EVERY 3 WK, Q21D
     Route: 041
     Dates: start: 20250314, end: 20250606
  4. SODIUM CHLORIDE [Suspect]
     Active Substance: SODIUM CHLORIDE
     Indication: Medication dilution
     Dosage: 500 ML, EVERY 3 WK, Q21H
     Route: 041
     Dates: start: 20250314, end: 20250606
  5. SODIUM CHLORIDE [Suspect]
     Active Substance: SODIUM CHLORIDE
     Dosage: 75.4 ML, EVERY 3 WK, Q21D
     Route: 041
     Dates: start: 20250314, end: 20250606
  6. DEXTROSE [Suspect]
     Active Substance: DEXTROSE MONOHYDRATE
     Indication: Medication dilution
     Dosage: 250 ML, EVERY 3 WK, Q21H
     Route: 041
     Dates: start: 20250314, end: 20250606

REACTIONS (5)
  - Drug eruption [Recovering/Resolving]
  - Skin exfoliation [Recovering/Resolving]
  - Erythema [Recovering/Resolving]
  - Skin ulcer [Recovering/Resolving]
  - Skin infection [Recovering/Resolving]

NARRATIVE: CASE EVENT DATE: 20250608
